FAERS Safety Report 6313660-5 (Version None)
Quarter: 2009Q3

REPORT INFORMATION
  Report Type: 
  Country: None (occurrence: None)
  Receive Date: 20090818
  Receipt Date: 20090810
  Transmission Date: 20100115
  Serious: Yes (Hospitalization, Other)
  Sender: FDA-Public Use
  Company Number: US-ELI_LILLY_AND_COMPANY-US200907003379

PATIENT
  Sex: Female

DRUGS (8)
  1. FORTEO [Suspect]
     Indication: OSTEOPOROSIS
     Dosage: 20 UG, DAILY (1/D)
     Dates: start: 20080701, end: 20090701
  2. SYNTHROID [Concomitant]
  3. CALCIUM CITRATE [Concomitant]
  4. METOPROLOL [Concomitant]
  5. PRESERVISION LUTEIN EYE VITA.+MIN.SUP.SOFTG. [Concomitant]
  6. COUMADIN [Concomitant]
  7. MULTI-VITAMIN [Concomitant]
  8. PREMARIN [Concomitant]

REACTIONS (2)
  - ASTHENIA [None]
  - ATRIAL FIBRILLATION [None]
